FAERS Safety Report 15597693 (Version 1)
Quarter: 2018Q4

REPORT INFORMATION
  Report Type: Spontaneous
  Country: US (occurrence: US)
  Receive Date: 20181108
  Receipt Date: 20181108
  Transmission Date: 20190205
  Serious: Yes (Other)
  Sender: FDA-Public Use
  Company Number: US-GLAXOSMITHKLINE-US2018GSK200975

PATIENT
  Sex: Male

DRUGS (3)
  1. FLOLAN DILUENT PH 12 [Suspect]
     Active Substance: GLYCINE\MANNITOL\SODIUM CHLORIDE
     Indication: PULMONARY ARTERIAL HYPERTENSION
     Dosage: UNK, CO
     Route: 042
     Dates: start: 20170623
  2. FLOLAN [Suspect]
     Active Substance: EPOPROSTENOL SODIUM
     Indication: PULMONARY ARTERIAL HYPERTENSION
     Dosage: 30 DF, C0
     Route: 042
     Dates: start: 20170623
  3. ADCIRCA [Concomitant]
     Active Substance: TADALAFIL

REACTIONS (9)
  - Flushing [Unknown]
  - Graft versus host disease [Unknown]
  - Bone marrow transplant [Unknown]
  - Pain in jaw [Unknown]
  - Cardiac disorder [Unknown]
  - Immunosuppression [Unknown]
  - Diarrhoea [Unknown]
  - Leukaemia [Unknown]
  - Scleroderma [Unknown]
